FAERS Safety Report 8994992 (Version 1)
Quarter: 2013Q1

REPORT INFORMATION
  Report Type: Report from Study
  Country: US (occurrence: US)
  Receive Date: 20130102
  Receipt Date: 20130102
  Transmission Date: 20140127
  Serious: Yes (Life-Threatening, Hospitalization)
  Sender: FDA-Public Use
  Company Number: US-PFIZER INC-2012331312

PATIENT
  Age: 4 Year
  Sex: Female

DRUGS (10)
  1. CYTARABINE [Suspect]
     Indication: ACUTE LYMPHOCYTIC LEUKAEMIA
     Dosage: 54 MG, 1X/DAY
     Route: 042
     Dates: start: 20121116, end: 20121119
  2. DOXORUBICIN HCL [Suspect]
     Indication: ACUTE LYMPHOCYTIC LEUKAEMIA
     Dosage: 19 MG, WEEKLY
     Route: 042
     Dates: start: 20121008, end: 20121015
  3. DOXORUBICIN HCL [Suspect]
     Dosage: 18.8 MG, UNK
     Dates: start: 20121022
  4. METHOTREXATE SODIUM [Suspect]
     Dosage: 12 MG, 1X/DAY
     Dates: start: 20121001
  5. DASATINIB [Suspect]
  6. VINCRISTINE SULFATE [Suspect]
     Dosage: 1.1 MG, WEEKLY
     Route: 042
     Dates: start: 20121008, end: 20121030
  7. CYCLOPHOSPHAMIDE [Suspect]
     Dosage: 720 MG, 1X/DAY
     Route: 042
     Dates: start: 20121114, end: 20121114
  8. THIOGUANINE [Suspect]
     Dosage: 40 MG, 1X/DAY
     Route: 048
     Dates: start: 20121114, end: 20121127
  9. PEGASPARGASE [Suspect]
     Dosage: 1875 IU, 1X/DAY
     Route: 042
     Dates: start: 20121008, end: 20121008
  10. DEXAMETHASONE [Suspect]
     Dosage: 7.5 MG, 1X/DAY
     Route: 048
     Dates: start: 20121001, end: 20121007

REACTIONS (6)
  - Infusion related reaction [Recovered/Resolved]
  - Febrile neutropenia [Recovered/Resolved]
  - Febrile neutropenia [Recovered/Resolved]
  - Urinary tract infection [Recovered/Resolved]
  - Headache [Recovered/Resolved]
  - Cough [Recovered/Resolved]
